FAERS Safety Report 4849654-6 (Version None)
Quarter: 2005Q4

REPORT INFORMATION
  Report Type: 
  Country: None (occurrence: None)
  Receive Date: 20051115
  Receipt Date: 20050727
  Transmission Date: 20060501
  Serious: No
  Sender: FDA-Public Use
  Company Number: S05-USA-03670-01

PATIENT
  Age: 64 Year
  Sex: Male

DRUGS (6)
  1. NAMENDA [Suspect]
     Indication: OPTIC ISCHAEMIC NEUROPATHY
     Dosage: 5 MG BID PO
     Route: 048
     Dates: start: 20050720, end: 20050724
  2. NAMENDA [Suspect]
     Indication: OPTIC ISCHAEMIC NEUROPATHY
     Dosage: 5 MG QD PO
     Route: 048
     Dates: start: 20050713, end: 20050719
  3. CARDIZEM [Concomitant]
  4. NAMENDA [Suspect]
     Indication: OPTIC ISCHAEMIC NEUROPATHY
     Dosage: 5 MG QD PO
     Route: 048
     Dates: start: 20050713, end: 20050719
  5. CARDIZEM [Concomitant]
  6. COUMADIN [Concomitant]

REACTIONS (5)
  - CONSTIPATION [None]
  - DEPRESSION [None]
  - HEADACHE [None]
  - NAUSEA [None]
  - RASH PRURITIC [None]
